FAERS Safety Report 16969016 (Version 2)
Quarter: 2019Q4

REPORT INFORMATION
  Report Type: Spontaneous
  Country: US (occurrence: US)
  Receive Date: 20191029
  Receipt Date: 20191104
  Transmission Date: 20200122
  Serious: Yes (Other)
  Sender: FDA-Public Use
  Company Number: US-BIODELIVERY SCIENCES INTERNATIONAL-2019BDSI0853

PATIENT
  Sex: Female

DRUGS (2)
  1. NO DRUG NAME [Concomitant]
     Indication: PRODUCT USED FOR UNKNOWN INDICATION
     Dosage: UNKNOWN; UNKNOWN
     Route: 065
  2. NALDEMEDINE TOSILATE [Suspect]
     Active Substance: NALDEMEDINE TOSYLATE
     Indication: FUNCTIONAL GASTROINTESTINAL DISORDER
     Dosage: UNKNOWN
     Route: 048

REACTIONS (1)
  - Hernia repair [Unknown]
